FAERS Safety Report 16308674 (Version 1)
Quarter: 2019Q2

REPORT INFORMATION
  Report Type: Spontaneous
  Country: DE (occurrence: DE)
  Receive Date: 20190514
  Receipt Date: 20190514
  Transmission Date: 20190711
  Serious: Yes (Hospitalization)
  Sender: FDA-Public Use
  Company Number: DE-009507513-1905DEU002824

PATIENT
  Age: 69 Year
  Sex: Female

DRUGS (2)
  1. IBUPROFEN. [Concomitant]
     Active Substance: IBUPROFEN
     Indication: ENDODONTIC PROCEDURE
     Dosage: UNK
     Dates: start: 201811
  2. BCG LIVE [Suspect]
     Active Substance: BACILLUS CALMETTE-GUERIN SUBSTRAIN TICE LIVE ANTIGEN
     Indication: BLADDER CANCER
     Dosage: 2ND CYCLE OF MAINTENANCE THERAPY, 3 X OVER 3 WEEKS
     Route: 043
     Dates: start: 20190129, end: 20190220

REACTIONS (11)
  - Dysuria [Not Recovered/Not Resolved]
  - Pharyngitis [Recovering/Resolving]
  - Eructation [Not Recovered/Not Resolved]
  - Constipation [Not Recovered/Not Resolved]
  - Haematuria [Not Recovered/Not Resolved]
  - Micturition urgency [Not Recovered/Not Resolved]
  - Abdominal discomfort [Not Recovered/Not Resolved]
  - Diarrhoea [Not Recovered/Not Resolved]
  - Arthralgia [Not Recovered/Not Resolved]
  - Myalgia [Not Recovered/Not Resolved]
  - Abdominal distension [Not Recovered/Not Resolved]

NARRATIVE: CASE EVENT DATE: 2019
